FAERS Safety Report 9220623 (Version 4)
Quarter: 2013Q4

REPORT INFORMATION
  Report Type: Spontaneous
  Country: US (occurrence: US)
  Receive Date: 20130409
  Receipt Date: 20131213
  Transmission Date: 20140711
  Serious: Yes (Death, Hospitalization, Disabling)
  Sender: FDA-Public Use
  Company Number: US-BAYER-2013-043613

PATIENT
  Age: 36 Year
  Sex: Female
  Weight: 58.96 kg

DRUGS (5)
  1. BEYAZ [Suspect]
     Dosage: UNK
     Dates: start: 2010, end: 2011
  2. YAZ [Suspect]
     Indication: CONTRACEPTION
     Dosage: UNK
     Dates: start: 20110221, end: 20110509
  3. MULTIVITAMIN [Concomitant]
  4. CALCIUM [Concomitant]
  5. CIPROFLOXACIN [Concomitant]

REACTIONS (22)
  - Pulmonary embolism [Fatal]
  - Cardiac arrest [Fatal]
  - Injury [Fatal]
  - Abdominal pain [None]
  - Emotional distress [None]
  - Anxiety [None]
  - Deformity [None]
  - Anhedonia [None]
  - Fear of disease [None]
  - General physical health deterioration [Fatal]
  - Syncope [Fatal]
  - Disorientation [Fatal]
  - Dyspnoea [Fatal]
  - Pallor [Fatal]
  - Cyanosis [Fatal]
  - Pulse absent [Fatal]
  - Apnoea [Fatal]
  - Loss of consciousness [Fatal]
  - Mydriasis [Fatal]
  - Abnormal behaviour [None]
  - Abdominal discomfort [None]
  - Pain [Fatal]
